FAERS Safety Report 11777804 (Version 1)
Quarter: 2015Q4

REPORT INFORMATION
  Report Type: Spontaneous
  Country: US (occurrence: US)
  Receive Date: 20151125
  Receipt Date: 20151125
  Transmission Date: 20160304
  Serious: Yes (Other)
  Sender: FDA-Public Use
  Company Number: US-THE MEDICINES COMPANY-US-MDCO-14-00282

PATIENT
  Sex: Male

DRUGS (4)
  1. ANGIOMAX [Suspect]
     Active Substance: BIVALIRUDIN
     Indication: PRODUCT USED FOR UNKNOWN INDICATION
     Dosage: 13-15 ML
     Route: 040
  2. ANGIOMAX [Suspect]
     Active Substance: BIVALIRUDIN
     Dosage: STANDARD INFUSION
     Route: 041
  3. ANGIOMAX [Suspect]
     Active Substance: BIVALIRUDIN
     Dosage: 13-15 ML
     Route: 040
  4. ANGIOMAX [Suspect]
     Active Substance: BIVALIRUDIN
     Dosage: NOT REPORTED
     Route: 041

REACTIONS (2)
  - Coronary artery thrombosis [Unknown]
  - Coagulation time abnormal [Unknown]

NARRATIVE: CASE EVENT DATE: 20141022
